FAERS Safety Report 18428610 (Version 10)
Quarter: 2022Q1

REPORT INFORMATION
  Report Type: Spontaneous
  Country: GB (occurrence: GB)
  Receive Date: 20201026
  Receipt Date: 20220301
  Transmission Date: 20220423
  Serious: Yes (Other)
  Sender: FDA-Public Use
  Company Number: GB-MYLANLABS-2020M1068709

PATIENT
  Age: 65 Year
  Sex: Male
  Weight: 78 kg

DRUGS (1)
  1. CLOZARIL [Suspect]
     Active Substance: CLOZAPINE
     Indication: Schizophrenia
     Dosage: UNK
     Route: 048
     Dates: start: 20120704, end: 202201

REACTIONS (4)
  - Chronic myeloid leukaemia [Unknown]
  - Thrombocytopenia [Not Recovered/Not Resolved]
  - Differential white blood cell count abnormal [Not Recovered/Not Resolved]
  - Constipation [Unknown]

NARRATIVE: CASE EVENT DATE: 20200728
